FAERS Safety Report 17779224 (Version 3)
Quarter: 2021Q2

REPORT INFORMATION
  Report Type: Spontaneous
  Country: US (occurrence: US)
  Receive Date: 20200513
  Receipt Date: 20210429
  Transmission Date: 20210716
  Serious: No
  Sender: FDA-Public Use
  Company Number: US-ASTRAZENECA-2020SE60777

PATIENT
  Age: 65 Year
  Sex: Male
  Weight: 97.5 kg

DRUGS (3)
  1. BYDUREON BCISE [Suspect]
     Active Substance: EXENATIDE
     Indication: TYPE 2 DIABETES MELLITUS
     Route: 058
     Dates: start: 2019
  2. PLAVIX [Suspect]
     Active Substance: CLOPIDOGREL BISULFATE
     Indication: ANTICOAGULANT THERAPY
     Route: 048
     Dates: start: 2010
  3. BYDUREON BCISE [Suspect]
     Active Substance: EXENATIDE
     Indication: TYPE 2 DIABETES MELLITUS
     Route: 058
     Dates: start: 20200503

REACTIONS (10)
  - Wrong technique in device usage process [Unknown]
  - Drug dose omission by device [Unknown]
  - Injection site mass [Recovered/Resolved]
  - Limb injury [Unknown]
  - Device issue [Unknown]
  - Device delivery system issue [Unknown]
  - Injection site bruising [Recovered/Resolved]
  - Skin atrophy [Unknown]
  - Injection site pain [Unknown]
  - Device leakage [Unknown]

NARRATIVE: CASE EVENT DATE: 2019
